FAERS Safety Report 10413075 (Version 5)
Quarter: 2015Q1

REPORT INFORMATION
  Report Type: Report from Study
  Country: US (occurrence: US)
  Receive Date: 20140827
  Receipt Date: 20150304
  Transmission Date: 20150720
  Serious: Yes (Other)
  Sender: FDA-Public Use
  Company Number: US-SA-2014SA065099

PATIENT
  Age: 61 Year
  Sex: Female

DRUGS (2)
  1. AUBAGIO [Suspect]
     Active Substance: TERIFLUNOMIDE
     Indication: MULTIPLE SCLEROSIS
     Route: 048
     Dates: start: 20140509, end: 201411
  2. AUBAGIO [Suspect]
     Active Substance: TERIFLUNOMIDE
     Indication: MULTIPLE SCLEROSIS
     Route: 048
     Dates: end: 20150201

REACTIONS (17)
  - Cellulitis [Unknown]
  - Clostridium difficile infection [Not Recovered/Not Resolved]
  - Hypotension [Unknown]
  - Multiple sclerosis relapse [Unknown]
  - Wound [Unknown]
  - Gait disturbance [Unknown]
  - Decubitus ulcer [Recovered/Resolved]
  - Herpes zoster [Recovered/Resolved]
  - Limb injury [Unknown]
  - Urinary tract infection [Unknown]
  - Chills [Unknown]
  - Diarrhoea [Unknown]
  - Bursitis [Unknown]
  - Unevaluable event [Unknown]
  - Multiple sclerosis [Unknown]
  - Drug dose omission [Unknown]
  - Back pain [Unknown]

NARRATIVE: CASE EVENT DATE: 2014
